FAERS Safety Report 16750108 (Version 1)
Quarter: 2019Q3

REPORT INFORMATION
  Report Type: Spontaneous
  Country: FR (occurrence: FR)
  Receive Date: 20190828
  Receipt Date: 20190828
  Transmission Date: 20191005
  Serious: Yes (Hospitalization)
  Sender: FDA-Public Use
  Company Number: PHHY2019FR199171

PATIENT
  Age: 54 Year
  Sex: Male
  Weight: 87.5 kg

DRUGS (22)
  1. DAPTOMYCIN. [Suspect]
     Active Substance: DAPTOMYCIN
     Indication: SEPTIC SHOCK
     Dosage: 850 MG, QD
     Route: 065
     Dates: start: 20190701, end: 20190704
  2. AMIKACIN. [Suspect]
     Active Substance: AMIKACIN
     Indication: SEPSIS
     Dosage: 1500 MG, QD
     Route: 065
     Dates: start: 20190604, end: 20190604
  3. OROZAMUDOL [Suspect]
     Active Substance: TRAMADOL
     Indication: PAIN
     Dosage: UNK
     Route: 048
     Dates: start: 20190520, end: 20190602
  4. NEFOPAM [Suspect]
     Active Substance: NEFOPAM
     Indication: PAIN
     Dosage: 20 MG, QD
     Route: 065
  5. CEFTRIAXONE. [Suspect]
     Active Substance: CEFTRIAXONE
     Indication: SEPSIS
     Dosage: 1 G, QD
     Route: 065
     Dates: start: 20190607, end: 20190613
  6. KARDEGIC [Concomitant]
     Active Substance: ASPIRIN DL-LYSINE
     Indication: PRODUCT USED FOR UNKNOWN INDICATION
     Dosage: 75 MG, QD
     Route: 048
  7. VANCOMYCIN SANDOZ [Suspect]
     Active Substance: VANCOMYCIN
     Indication: PAIN
     Dosage: 3080 MG, QD
     Route: 065
     Dates: start: 20190605, end: 20190628
  8. ACTISKENAN [Suspect]
     Active Substance: MORPHINE SULFATE
     Indication: PAIN
     Dosage: 15 MG, QD
     Route: 048
     Dates: start: 20190629, end: 20190705
  9. CETIRIZINE [Suspect]
     Active Substance: CETIRIZINE HYDROCHLORIDE
     Indication: ALLERGY PROPHYLAXIS
     Dosage: 1 OT, QD
     Route: 065
     Dates: start: 20190606
  10. DOLIPRANE [Concomitant]
     Active Substance: ACETAMINOPHEN
     Indication: PRODUCT USED FOR UNKNOWN INDICATION
     Dosage: UNK
     Route: 048
  11. OCTREOTIDE. [Suspect]
     Active Substance: OCTREOTIDE
     Indication: GASTROINTESTINAL HAEMORRHAGE
     Dosage: 1 OT, QD
     Route: 042
     Dates: start: 20190605, end: 20190607
  12. KONAKION MM [Suspect]
     Active Substance: PHYTONADIONE
     Indication: PROTHROMBIN TIME RATIO DECREASED
     Dosage: 20 MG, QD
     Route: 042
     Dates: start: 20190604, end: 20190609
  13. REMIFENTANIL [Suspect]
     Active Substance: REMIFENTANIL
     Indication: ANAESTHESIA
     Dosage: 796 UG, QD
     Route: 065
     Dates: start: 20190515, end: 20190515
  14. PIPERACILLIN AND TAZOBACTAM [Suspect]
     Active Substance: PIPERACILLIN SODIUM\TAZOBACTAM SODIUM
     Dosage: 12 G, QD
     Route: 042
     Dates: start: 20190614, end: 20190624
  15. PANTOPRAZOLE [Suspect]
     Active Substance: PANTOPRAZOLE
     Indication: PROPHYLAXIS AGAINST GASTROINTESTINAL ULCER
     Dosage: 20 MG, UNK
     Route: 048
  16. LOVENOX [Suspect]
     Active Substance: ENOXAPARIN SODIUM
     Indication: THROMBOSIS PROPHYLAXIS
     Dosage: 4000 IU, QD
     Route: 065
  17. MAGNESIUM [Suspect]
     Active Substance: MAGNESIUM
     Indication: MAGNESIUM DEFICIENCY
     Dosage: 1 OT, QD
     Route: 065
  18. PROPOFOL. [Suspect]
     Active Substance: PROPOFOL
     Indication: PAIN
     Dosage: 1088 MG, QD
     Route: 065
     Dates: start: 20190515, end: 20190515
  19. TINZAPARIN SODIUM [Suspect]
     Active Substance: TINZAPARIN SODIUM
     Indication: THROMBOSIS
     Dosage: 17000 IU, QD
     Route: 058
     Dates: start: 20190505, end: 20190520
  20. COLCHICINE OPOCALCIUM [Suspect]
     Active Substance: COLCHICINE
     Indication: GOUT
     Dosage: 2 MG, QD
     Route: 048
     Dates: start: 20190615, end: 20190617
  21. TOPALGIC LP [Suspect]
     Active Substance: TRAMADOL HYDROCHLORIDE
     Indication: PAIN
     Dosage: 200 MG, QD
     Route: 048
     Dates: start: 20190515, end: 20190515
  22. PIPERACILLIN AND TAZOBACTAM [Suspect]
     Active Substance: PIPERACILLIN SODIUM\TAZOBACTAM SODIUM
     Indication: SEPSIS
     Dosage: 12 G, QD
     Route: 042
     Dates: start: 20190406, end: 20190607

REACTIONS (1)
  - Drug reaction with eosinophilia and systemic symptoms [Not Recovered/Not Resolved]

NARRATIVE: CASE EVENT DATE: 20190701
